FAERS Safety Report 4276617-4 (Version None)
Quarter: 2004Q1

REPORT INFORMATION
  Report Type: 
  Country: None (occurrence: None)
  Receive Date: 20040120
  Receipt Date: 20040113
  Transmission Date: 20041129
  Serious: Yes (Hospitalization)
  Sender: FDA-Public Use
  Company Number: JRFUSA2000003800

PATIENT
  Age: 52 Year
  Sex: Female

DRUGS (4)
  1. PROPULSID [Suspect]
     Indication: GASTROOESOPHAGEAL REFLUX DISEASE
     Dosage: 20 MG, 2 IN  1 DAY, ORAL
     Route: 048
     Dates: start: 19981101, end: 20000101
  2. ZANTAC [Concomitant]
  3. ATENOLOL [Concomitant]
  4. PREVACID [Concomitant]

REACTIONS (18)
  - ANGINA PECTORIS [None]
  - ANGIOGRAM ABNORMAL [None]
  - AORTIC VALVE SCLEROSIS [None]
  - BUNDLE BRANCH BLOCK LEFT [None]
  - CARDIAC DISORDER [None]
  - CARDIAC FAILURE CONGESTIVE [None]
  - CHEST DISCOMFORT [None]
  - CHEST PAIN [None]
  - CORONARY ARTERY DISEASE [None]
  - DIASTOLIC DYSFUNCTION [None]
  - EJECTION FRACTION DECREASED [None]
  - FEELING ABNORMAL [None]
  - GASTRITIS [None]
  - HYPERTENSION [None]
  - MITRAL VALVE INCOMPETENCE [None]
  - REFLUX OESOPHAGITIS [None]
  - TREATMENT NONCOMPLIANCE [None]
  - TRICUSPID VALVE INCOMPETENCE [None]
